FAERS Safety Report 6311879-0 (Version None)
Quarter: 2009Q3

REPORT INFORMATION
  Report Type: 
  Country: None (occurrence: None)
  Receive Date: 20090817
  Receipt Date: 20090805
  Transmission Date: 20100115
  Serious: Yes (Hospitalization, Disabling, Other)
  Sender: FDA-Public Use
  Company Number: US-MERCK-0902USA00146

PATIENT
  Age: 53 Year
  Sex: Female

DRUGS (2)
  1. FOSAMAX [Suspect]
     Indication: OSTEOPOROSIS
     Route: 048
     Dates: start: 20020101
  2. FOSAMAX [Suspect]
     Route: 048

REACTIONS (19)
  - ABSCESS [None]
  - ANXIETY [None]
  - ARTHROPATHY [None]
  - BLOOD CHOLESTEROL ABNORMAL [None]
  - BONE DISORDER [None]
  - DEPRESSION [None]
  - EDENTULOUS [None]
  - EXOSTOSIS [None]
  - GASTRIC DISORDER [None]
  - GINGIVAL DISORDER [None]
  - GINGIVITIS [None]
  - IMPAIRED HEALING [None]
  - JOINT RANGE OF MOTION DECREASED [None]
  - ORAL DISORDER [None]
  - OSTEONECROSIS [None]
  - OSTEORADIONECROSIS [None]
  - PANCREATITIS [None]
  - PERIODONTAL DISEASE [None]
  - SJOGREN'S SYNDROME [None]
